FAERS Safety Report 5341099-8 (Version None)
Quarter: 2007Q2

REPORT INFORMATION
  Report Type: 
  Country: None (occurrence: None)
  Receive Date: 20070405
  Receipt Date: 20060926
  Transmission Date: 20071010
  Serious: Yes (Hospitalization)
  Sender: FDA-Public Use
  Company Number: 2006-05136

PATIENT
  Sex: Female

DRUGS (1)
  1. FERRLECIT [Suspect]
     Indication: IRON DEFICIENCY ANAEMIA
     Dosage: 500 MG OVER 2 HOURS X 1 DOSE; INTRAVENOUS
     Route: 042
     Dates: start: 20060101, end: 20060101

REACTIONS (2)
  - PARAESTHESIA [None]
  - URTICARIA [None]
